FAERS Safety Report 6861461-1 (Version None)
Quarter: 2010Q3

REPORT INFORMATION
  Report Type: 
  Country: None (occurrence: None)
  Receive Date: 20100720
  Receipt Date: 20100713
  Transmission Date: 20110219
  Serious: Yes (Hospitalization, Other)
  Sender: FDA-Public Use
  Company Number: SE-AMGEN-QUU422241

PATIENT
  Sex: Male
  Weight: 83.5 kg

DRUGS (8)
  1. ARANESP [Suspect]
     Indication: RENAL FAILURE CHRONIC
     Dates: start: 20050901, end: 20100706
  2. TROMBYL [Concomitant]
     Route: 048
  3. FOLACIN [Concomitant]
     Route: 048
  4. FUROSEMID [Concomitant]
     Route: 048
  5. KREDEX [Concomitant]
     Route: 048
  6. PROSCAR [Concomitant]
     Route: 048
  7. CINACALCET HYDROCHLORIDE [Concomitant]
     Route: 048
  8. DIGOXIN [Concomitant]
     Dates: start: 20091212

REACTIONS (9)
  - ANAEMIA [None]
  - APLASIA PURE RED CELL [None]
  - BACTERIAL INFECTION [None]
  - CARDIAC FAILURE [None]
  - GRAFT DYSFUNCTION [None]
  - HAEMOGLOBIN DECREASED [None]
  - RED BLOOD CELL COUNT DECREASED [None]
  - RETICULOCYTE COUNT DECREASED [None]
  - STAPHYLOCOCCAL SEPSIS [None]
